FAERS Safety Report 19909841 (Version 2)
Quarter: 2021Q4

REPORT INFORMATION
  Report Type: Spontaneous
  Country: PL (occurrence: PL)
  Receive Date: 20211003
  Receipt Date: 20211124
  Transmission Date: 20220303
  Serious: Yes (Other)
  Sender: FDA-Public Use
  Company Number: PL-NOVARTISPH-NVSC2021PL218372

PATIENT
  Age: 70 Year
  Sex: Female

DRUGS (2)
  1. RYDAPT [Suspect]
     Active Substance: MIDOSTAURIN
     Indication: Systemic mastocytosis
     Dosage: UNK
     Route: 065
     Dates: start: 20210419
  2. ARANESP [Concomitant]
     Active Substance: DARBEPOETIN ALFA
     Indication: Myelodysplastic syndrome
     Dosage: EVERY 3-4 WEEKS
     Route: 065

REACTIONS (9)
  - Neutropenia [Unknown]
  - Insulin-requiring type 2 diabetes mellitus [Unknown]
  - Product odour abnormal [Unknown]
  - Anaemia [Unknown]
  - Hypertension [Unknown]
  - Cholelithiasis [Unknown]
  - Hyperuricaemia [Unknown]
  - Migraine [Unknown]
  - Haemoglobin decreased [Unknown]

NARRATIVE: CASE EVENT DATE: 20210501
